FAERS Safety Report 4915039-7 (Version None)
Quarter: 2006Q1

REPORT INFORMATION
  Report Type: 
  Country: None (occurrence: None)
  Receive Date: 20060217
  Receipt Date: 20060209
  Transmission Date: 20060701
  Serious: Yes (Other)
  Sender: FDA-Public Use
  Company Number: 2006UW02260

PATIENT
  Sex: Male

DRUGS (1)
  1. ELAVIL [Suspect]
     Route: 048

REACTIONS (1)
  - OVERDOSE [None]
